FAERS Safety Report 24585023 (Version 2)
Quarter: 2024Q4

REPORT INFORMATION
  Report Type: Spontaneous
  Country: US (occurrence: US)
  Receive Date: 20241106
  Receipt Date: 20241205
  Transmission Date: 20250115
  Serious: No
  Sender: BRISTOL-MYERS SQUIBB COMPANY
  Company Number: US-BRISTOL-MYERS SQUIBB COMPANY-2024-171866

PATIENT
  Age: 77 Year
  Sex: Female
  Weight: 44.45 kg

DRUGS (2)
  1. REVLIMID [Suspect]
     Active Substance: LENALIDOMIDE
     Indication: Plasma cell myeloma
     Route: 048
     Dates: start: 20241001
  2. REVLIMID [Suspect]
     Active Substance: LENALIDOMIDE
     Route: 048
     Dates: start: 202410

REACTIONS (4)
  - Dysphonia [Not Recovered/Not Resolved]
  - Lacrimation increased [Recovering/Resolving]
  - Muscle spasms [Not Recovered/Not Resolved]
  - Dry eye [Recovering/Resolving]
